FAERS Safety Report 9824929 (Version 1)
Quarter: 2014Q1

REPORT INFORMATION
  Report Type: Spontaneous
  Country: VN (occurrence: VN)
  Receive Date: 20140117
  Receipt Date: 20140117
  Transmission Date: 20141002
  Serious: Yes (Other)
  Sender: FDA-Public Use
  Company Number: VN-JNJFOC-20140104349

PATIENT
  Sex: 0

DRUGS (1)
  1. CAELYX [Suspect]
     Indication: NEOPLASM
     Route: 042

REACTIONS (8)
  - Supraventricular extrasystoles [Recovered/Resolved]
  - Ventricular extrasystoles [Recovered/Resolved]
  - Atrioventricular block [Recovered/Resolved]
  - Bundle branch block right [Recovered/Resolved]
  - Ejection fraction decreased [Recovered/Resolved]
  - Electrocardiogram QT prolonged [Recovered/Resolved]
  - Sinus tachycardia [Recovered/Resolved]
  - Electrocardiogram QRS complex abnormal [Recovered/Resolved]
